FAERS Safety Report 6686207-1 (Version None)
Quarter: 2010Q2

REPORT INFORMATION
  Report Type: 
  Country: None (occurrence: None)
  Receive Date: 20100415
  Receipt Date: 20100415
  Transmission Date: 20101027
  Serious: No
  Sender: FDA-Public Use
  Company Number: None

PATIENT
  Age: 65 Year
  Sex: Female
  Weight: 108.4097 kg

DRUGS (4)
  1. LEVAQUIN [Suspect]
     Indication: COUGH
     Dosage: 750MG OER ONE TABLET ONCE DAILY PO
     Route: 048
     Dates: start: 20100329, end: 20100404
  2. LEVAQUIN [Suspect]
     Indication: RESPIRATORY TRACT INFECTION
     Dosage: 750MG OER ONE TABLET ONCE DAILY PO
     Route: 048
     Dates: start: 20100329, end: 20100404
  3. LEVAQUIN [Suspect]
     Indication: SPUTUM DISCOLOURED
     Dosage: 750MG OER ONE TABLET ONCE DAILY PO
     Route: 048
     Dates: start: 20100329, end: 20100404
  4. LEVAQUIN [Suspect]
     Indication: WHEEZING
     Dosage: 750MG OER ONE TABLET ONCE DAILY PO
     Route: 048
     Dates: start: 20100329, end: 20100404

REACTIONS (2)
  - GAIT DISTURBANCE [None]
  - MYALGIA [None]
